FAERS Safety Report 9117527 (Version 1)
Quarter: 2013Q1

REPORT INFORMATION
  Report Type: Spontaneous
  Country: US (occurrence: US)
  Receive Date: 20130225
  Receipt Date: 20130225
  Transmission Date: 20140127
  Serious: No
  Sender: FDA-Public Use
  Company Number: US-BIOGENIDEC-2013BI015519

PATIENT
  Age: 56 Year
  Sex: Female

DRUGS (1)
  1. TYSABRI [Suspect]
     Indication: MULTIPLE SCLEROSIS
     Route: 042
     Dates: start: 20121031, end: 20130102

REACTIONS (9)
  - Furuncle [Unknown]
  - Back pain [Unknown]
  - Balance disorder [Unknown]
  - Pain in extremity [Unknown]
  - Optic nerve disorder [Unknown]
  - Asthenia [Unknown]
  - Blood pressure increased [Unknown]
  - Hypersensitivity [Not Recovered/Not Resolved]
  - Aphasia [Unknown]
